FAERS Safety Report 8415342-2 (Version None)
Quarter: 2012Q2

REPORT INFORMATION
  Report Type: 
  Country: None (occurrence: None)
  Receive Date: 20120606
  Receipt Date: 20120529
  Transmission Date: 20120825
  Serious: Yes (Hospitalization, Other)
  Sender: FDA-Public Use
  Company Number: PHHY2012MX047242

PATIENT
  Sex: Female

DRUGS (6)
  1. INSULIN [Concomitant]
     Dosage: 50 IU, DAILY
  2. LYRICA [Concomitant]
     Dosage: 225 MG, DAILY
  3. EXFORGE HCT [Suspect]
     Dosage: 1 TABLET (320/10/25 MG), DAILY
     Dates: start: 20120413
  4. METFORMIN HCL [Concomitant]
     Dosage: 3 DF, DAILY
  5. DIOVAN [Concomitant]
     Indication: HYPERTENSION
     Dosage: 1 TABLET, DAILY
  6. CYMBALTA [Concomitant]
     Dosage: 1 TABLET, DAILY

REACTIONS (8)
  - METABOLIC DISORDER [None]
  - OEDEMA PERIPHERAL [None]
  - LOCALISED OEDEMA [None]
  - TREMOR [None]
  - FIBRIN D DIMER INCREASED [None]
  - RENAL FAILURE ACUTE [None]
  - FACE OEDEMA [None]
  - BLOOD PRESSURE INADEQUATELY CONTROLLED [None]
